FAERS Safety Report 19728235 (Version 1)
Quarter: 2021Q3

REPORT INFORMATION
  Report Type: Spontaneous
  Country: DE (occurrence: DE)
  Receive Date: 20210820
  Receipt Date: 20210820
  Transmission Date: 20211014
  Serious: Yes (Hospitalization, Other)
  Sender: FDA-Public Use
  Company Number: DE-TEVA-2021-DE-1942584

PATIENT
  Age: 79 Year
  Sex: Female

DRUGS (18)
  1. TORASEMID [Concomitant]
     Active Substance: TORSEMIDE
     Dosage: 10 MILLIGRAM DAILY;   1?0?0?0,
     Route: 048
  2. MIRTAZAPIN [Suspect]
     Active Substance: MIRTAZAPINE
     Dosage: .5 DOSAGE FORMS DAILY; 30 MG, 0?0?0?0.5,
     Route: 048
  3. FOSFOMYCIN [Suspect]
     Active Substance: FOSFOMYCIN
     Dosage: 3 G,
     Route: 048
  4. METOPROLOL. [Concomitant]
     Active Substance: METOPROLOL
     Dosage: 190 MILLIGRAM DAILY;  1?0?1?0,
     Route: 048
  5. MOVICOL [Concomitant]
     Active Substance: POLYETHYLENE GLYCOL 3350\POTASSIUM CHLORIDE\SODIUM BICARBONATE\SODIUM CHLORIDE
     Dosage: IF CONSTIPATED,
     Route: 048
  6. DRONEDARON [Concomitant]
     Active Substance: DRONEDARONE
     Dosage: 800 MILLIGRAM DAILY;   1?0?1?0,
     Route: 048
  7. EDOXABAN [Suspect]
     Active Substance: EDOXABAN TOSYLATE
     Dosage: 30 MILLIGRAM DAILY;   1?0?0?0,
     Route: 048
  8. METOPROLOL. [Concomitant]
     Active Substance: METOPROLOL
     Dosage: 3 DOSAGE FORMS DAILY; 47.5 MG, 1.5?0?1.5?0,
     Route: 048
  9. MIRTAZAPIN [Concomitant]
     Active Substance: MIRTAZAPINE
     Dosage: 30 MG
     Route: 048
  10. PREDNISOLON [Suspect]
     Active Substance: PREDNISOLONE
     Dosage: 10 MILLIGRAM DAILY;   1?0?0?0,
     Route: 048
  11. MCP?STADA 10MG [Concomitant]
     Dosage: 10 MG
     Route: 048
  12. OXYCODON [Concomitant]
     Active Substance: OXYCODONE
     Dosage: 10 MILLIGRAM DAILY;   1?0?1?0,
     Route: 048
  13. ATORVASTATIN [Concomitant]
     Active Substance: ATORVASTATIN
     Dosage: 80 MILLIGRAM DAILY;  0?0?1?0,
     Route: 048
  14. LEVOTHYROXINE SODIUM. [Concomitant]
     Active Substance: LEVOTHYROXINE SODIUM
     Dosage: 100 MICROGRAM DAILY;  1?0?0?0
     Route: 048
  15. NALOXONE W/OXYCODONE [Concomitant]
     Active Substance: NALOXONE HYDROCHLORIDE\OXYCODONE HYDROCHLORIDE
     Dosage: 2 DOSAGE FORMS DAILY; 9|4.5 MG, 1?0?1?0,
     Route: 048
  16. PANTOPRAZOL [Concomitant]
     Active Substance: PANTOPRAZOLE SODIUM
     Dosage: 40 MG,
     Route: 048
  17. ESCITALOPRAM [Concomitant]
     Active Substance: ESCITALOPRAM OXALATE
     Dosage: 5 MG,
     Route: 048
  18. RAMIPRIL. [Concomitant]
     Active Substance: RAMIPRIL
     Dosage: .5 DOSAGE FORMS DAILY; 5 MG, 0?0?0.5?0,
     Route: 048

REACTIONS (6)
  - Hypotension [Unknown]
  - General physical health deterioration [Unknown]
  - Dyspnoea [Unknown]
  - Hypokalaemia [Unknown]
  - Gastroenteritis clostridial [Unknown]
  - Diarrhoea [Unknown]
